FAERS Safety Report 7883567-0 (Version None)
Quarter: 2011Q4

REPORT INFORMATION
  Report Type: 
  Country: None (occurrence: None)
  Receive Date: 20111031
  Receipt Date: 20111018
  Transmission Date: 20120403
  Serious: Yes (Death, Other)
  Sender: FDA-Public Use
  Company Number: FK201102379

PATIENT
  Age: 45 Year
  Sex: Male

DRUGS (2)
  1. CAPECTABINE (MANUFACTURER UNKNOWN) (CAPECITABINE) (CAPECITABINE) [Suspect]
     Indication: GASTRIC CANCER
     Dosage: 1250 MG/M2
  2. CISPLATIN [Suspect]
     Indication: GASTRIC CANCER
     Dosage: 60 MG/M2, INTRAVENOUS (NOT OTHERWISE SPECIFIED)
     Route: 042

REACTIONS (10)
  - ABDOMINAL DISTENSION [None]
  - ABDOMINAL PAIN [None]
  - ARTERIAL THROMBOSIS [None]
  - CARDIAC ARREST [None]
  - HAEMATOCHEZIA [None]
  - COLITIS ISCHAEMIC [None]
  - ABDOMINAL RIGIDITY [None]
  - ANEURYSM [None]
  - DIARRHOEA HAEMORRHAGIC [None]
  - ABDOMINAL TENDERNESS [None]
